FAERS Safety Report 11223341 (Version 1)
Quarter: 2015Q2

REPORT INFORMATION
  Report Type: Report from Study
  Country: US (occurrence: US)
  Receive Date: 20150627
  Receipt Date: 20150627
  Transmission Date: 20150821
  Serious: Yes (Hospitalization, Other)
  Sender: FDA-Public Use
  Company Number: PHHY2015US076613

PATIENT
  Age: 15 Year
  Sex: Male
  Weight: 58 kg

DRUGS (9)
  1. DOCETAXEL. [Concomitant]
     Active Substance: DOCETAXEL
     Indication: PRODUCT USED FOR UNKNOWN INDICATION
     Route: 065
  2. TOPOTECAN [Concomitant]
     Active Substance: TOPOTECAN\TOPOTECAN HYDROCHLORIDE
     Indication: PRODUCT USED FOR UNKNOWN INDICATION
     Dosage: 0.75 MG/M2
     Route: 065
     Dates: start: 20150108, end: 20150413
  3. CRIZOTINIB [Suspect]
     Active Substance: CRIZOTINIB
     Indication: NASOPHARYNGEAL CANCER
     Dosage: 165 MG/M2, CYCLIC
     Route: 065
     Dates: start: 20150108, end: 20150423
  4. CARBOPLATIN. [Concomitant]
     Active Substance: CARBOPLATIN
     Indication: PRODUCT USED FOR UNKNOWN INDICATION
     Route: 065
  5. SOLU-MEDROL [Concomitant]
     Active Substance: METHYLPREDNISOLONE SODIUM SUCCINATE
     Indication: PRODUCT USED FOR UNKNOWN INDICATION
     Dosage: 30 MG, Q12H
     Route: 065
  6. CALCIUM GLUCONATE. [Concomitant]
     Active Substance: CALCIUM GLUCONATE
     Indication: PRODUCT USED FOR UNKNOWN INDICATION
     Dosage: 2000 MG
     Route: 042
  7. CAPECITABINE. [Concomitant]
     Active Substance: CAPECITABINE
     Indication: PRODUCT USED FOR UNKNOWN INDICATION
     Route: 065
  8. ZOLEDRONATE [Suspect]
     Active Substance: ZOLEDRONIC ACID
     Indication: PRODUCT USED FOR UNKNOWN INDICATION
     Dosage: 4 MG, UNK
     Route: 065
  9. CYCLOPHOSPHAMIDE. [Concomitant]
     Active Substance: CYCLOPHOSPHAMIDE
     Indication: NASOPHARYNGEAL CANCER
     Dosage: 250 MG/M2,
     Route: 065
     Dates: start: 20150108, end: 20150413

REACTIONS (12)
  - Dyskinesia [Unknown]
  - Hypertrophic osteoarthropathy [Unknown]
  - Joint swelling [Unknown]
  - Bone pain [Recovering/Resolving]
  - Oedema peripheral [Unknown]
  - Decreased appetite [Unknown]
  - Arthralgia [Recovering/Resolving]
  - Electrolyte imbalance [Recovering/Resolving]
  - Malnutrition [Unknown]
  - Hypocalcaemia [Recovering/Resolving]
  - Inflammation [Unknown]
  - Abasia [Unknown]

NARRATIVE: CASE EVENT DATE: 20150504
